FAERS Safety Report 18876024 (Version 2)
Quarter: 2021Q2

REPORT INFORMATION
  Report Type: Spontaneous
  Country: US (occurrence: US)
  Receive Date: 20210210
  Receipt Date: 20210430
  Transmission Date: 20210717
  Serious: Yes (Other)
  Sender: FDA-Public Use
  Company Number: US-BAYER-2021-054971

PATIENT
  Age: 84 Year
  Sex: Male

DRUGS (1)
  1. MIRALAX [Suspect]
     Active Substance: POLYETHYLENE GLYCOL 3350
     Indication: BOWEL MOVEMENT IRREGULARITY
     Dosage: UNK UNK, QD
     Dates: start: 20210128

REACTIONS (4)
  - Proctalgia [Unknown]
  - Rectal haemorrhage [Unknown]
  - Therapeutic product effect decreased [Unknown]
  - Diarrhoea [Unknown]

NARRATIVE: CASE EVENT DATE: 202101
